FAERS Safety Report 12930609 (Version 1)
Quarter: 2016Q4

REPORT INFORMATION
  Report Type: Spontaneous
  Country: US (occurrence: US)
  Receive Date: 20161111
  Receipt Date: 20161111
  Transmission Date: 20170207
  Serious: Yes (Hospitalization)
  Sender: FDA-Public Use
  Company Number: None

PATIENT
  Age: 81 Year
  Sex: Female
  Weight: 75.4 kg

DRUGS (19)
  1. DOCUSATE [Concomitant]
     Active Substance: DOCUSATE
  2. INSULIN REGULAR, HUMAN (HUMULIN R) [Concomitant]
  3. CILOSTAZOL. [Concomitant]
     Active Substance: CILOSTAZOL
  4. HYDROCODONE-ACETAMINOPHEN [Concomitant]
     Active Substance: ACETAMINOPHEN\HYDROCODONE
  5. CLOPIDOGREL [Concomitant]
     Active Substance: CLOPIDOGREL BISULFATE
  6. MECLIZINE [Concomitant]
     Active Substance: MECLIZINE HYDROCHLORIDE
  7. DONEPEZIL. [Concomitant]
     Active Substance: DONEPEZIL
  8. OXYBUTYNIN [Concomitant]
     Active Substance: OXYBUTYNIN
  9. GLIPIZIDE ER [Concomitant]
     Active Substance: GLIPIZIDE
  10. PENTOXIFYLLINE. [Concomitant]
     Active Substance: PENTOXIFYLLINE
  11. LORATADINE. [Concomitant]
     Active Substance: LORATADINE
  12. NICOTINE TRANSDERMAL SYSTEM [Concomitant]
     Active Substance: NICOTINE
  13. LISINOPRIL. [Concomitant]
     Active Substance: LISINOPRIL
  14. CHLORTHALIDONE. [Concomitant]
     Active Substance: CHLORTHALIDONE
  15. ELEMENTAL MAGNESIUM [Concomitant]
  16. WARFARIN [Suspect]
     Active Substance: WARFARIN
     Indication: DEEP VEIN THROMBOSIS
     Route: 048
  17. AMLODIPINE [Concomitant]
     Active Substance: AMLODIPINE BESYLATE
  18. MAGNESIUM ASPARTATE HCL (MAGINEX) [Concomitant]
  19. PRAVASTATIN. [Concomitant]
     Active Substance: PRAVASTATIN

REACTIONS (6)
  - Gastrointestinal haemorrhage [None]
  - Haematochezia [None]
  - Mallory-Weiss syndrome [None]
  - Haematemesis [None]
  - Anaemia [None]
  - International normalised ratio increased [None]

NARRATIVE: CASE EVENT DATE: 20160807
